FAERS Safety Report 22362072 (Version 2)
Quarter: 2023Q4

REPORT INFORMATION
  Report Type: Spontaneous
  Country: US (occurrence: US)
  Receive Date: 20230524
  Receipt Date: 20231024
  Transmission Date: 20240110
  Serious: Yes (Other)
  Sender: FDA-Public Use
  Company Number: US-PFIZER INC-202300197441

PATIENT
  Age: 66 Year
  Sex: Female

DRUGS (1)
  1. NURTEC ODT [Suspect]
     Active Substance: RIMEGEPANT SULFATE
     Dosage: UNK

REACTIONS (13)
  - Rash pruritic [Unknown]
  - Urticaria [Unknown]
  - Suicidal ideation [Unknown]
  - Nausea [Unknown]
  - Morning sickness [Unknown]
  - Initial insomnia [Unknown]
  - Eye pain [Recovered/Resolved]
  - Diplopia [Recovered/Resolved]
  - Disease recurrence [Recovered/Resolved]
  - Dyschromatopsia [Recovered/Resolved]
  - Visual impairment [Recovered/Resolved]
  - Headache [Unknown]
  - Anxiety [Unknown]
